FAERS Safety Report 6962938-0 (Version None)
Quarter: 2010Q3

REPORT INFORMATION
  Report Type: 
  Country: None (occurrence: None)
  Receive Date: 20100823
  Receipt Date: 20100706
  Transmission Date: 20110219
  Serious: Yes (Hospitalization)
  Sender: FDA-Public Use
  Company Number: 015129

PATIENT
  Sex: Male
  Weight: 76.6 kg

DRUGS (1)
  1. CIMZIA [Suspect]
     Indication: CROHN'S DISEASE
     Dosage: 400 MG 1X/MONTH SUBCUTANEOUS
     Route: 058
     Dates: start: 20100301, end: 20100501

REACTIONS (2)
  - GASTROINTESTINAL SURGERY [None]
  - RHINORRHOEA [None]
